FAERS Safety Report 7705536-3 (Version None)
Quarter: 2011Q3

REPORT INFORMATION
  Report Type: 
  Country: None (occurrence: None)
  Receive Date: 20110824
  Receipt Date: 20110811
  Transmission Date: 20111222
  Serious: Yes (Other)
  Sender: FDA-Public Use
  Company Number: US-ELI_LILLY_AND_COMPANY-US201007003008

PATIENT
  Sex: Female

DRUGS (10)
  1. WELLBUTRIN XL [Concomitant]
     Dosage: 1 D/F, DAILY (1/D)
  2. CLONIDINE [Concomitant]
  3. KLONOPIN [Concomitant]
     Dosage: 1 MG, 4/D
  4. REQUIP [Concomitant]
     Dosage: 30 MG, EACH EVENING
  5. REQUIP [Concomitant]
     Dosage: 0.5 MG, AS NEEDED
  6. FORTEO [Suspect]
     Dosage: 20 UG, QD
  7. KLONOPIN [Concomitant]
     Dosage: 1 MG, AS NEEDED
  8. FORTEO [Suspect]
     Indication: OSTEOPOROSIS
     Dosage: 20 UG, DAILY (1/D)
     Route: 065
  9. PROZAC [Concomitant]
     Dosage: 40 MG, DAILY (1/D)
  10. FORTEO [Suspect]
     Dosage: 20 UG, QD
     Route: 065

REACTIONS (11)
  - GAIT DISTURBANCE [None]
  - FOOT FRACTURE [None]
  - BONE DISORDER [None]
  - HAND FRACTURE [None]
  - WRIST FRACTURE [None]
  - DRUG DOSE OMISSION [None]
  - FOREARM FRACTURE [None]
  - FALL [None]
  - BACK PAIN [None]
  - PELVIC FRACTURE [None]
  - BONE DENSITY DECREASED [None]
